FAERS Safety Report 7346608-5 (Version None)
Quarter: 2011Q1

REPORT INFORMATION
  Report Type: 
  Country: None (occurrence: None)
  Receive Date: 20110311
  Receipt Date: 20110228
  Transmission Date: 20110831
  Serious: Yes (Other)
  Sender: FDA-Public Use
  Company Number: US-JNJFOC-20101006544

PATIENT
  Sex: Female
  Weight: 97.98 kg

DRUGS (5)
  1. TYLENOL EXTRA STRENGTH [Concomitant]
     Route: 048
  2. REMICADE [Suspect]
     Indication: RHEUMATOID ARTHRITIS
     Route: 042
  3. PERCOCET [Concomitant]
     Route: 048
  4. PREDNISONE [Concomitant]
     Route: 048
  5. PROTONIX [Concomitant]
     Route: 048

REACTIONS (2)
  - CAESAREAN SECTION [None]
  - DRUG EXPOSURE DURING PREGNANCY [None]
